FAERS Safety Report 4435685-7 (Version None)
Quarter: 2004Q3

REPORT INFORMATION
  Report Type: 
  Country: None (occurrence: None)
  Receive Date: 20040726
  Receipt Date: 20040308
  Transmission Date: 20050211
  Serious: No
  Sender: FDA-Public Use
  Company Number: US_030393012

PATIENT
  Age: 59 Year
  Sex: Female
  Weight: 45 kg

DRUGS (4)
  1. FORTEO [Suspect]
     Indication: BONE DENSITY DECREASED
     Dates: start: 20030201
  2. FORTEO [Suspect]
     Indication: OSTEOPOROSIS
     Dates: start: 20030201
  3. LEVOXYL [Concomitant]
  4. ESTRADIOL [Concomitant]

REACTIONS (6)
  - CONSTIPATION [None]
  - HYPERSENSITIVITY [None]
  - INJECTION SITE IRRITATION [None]
  - INJECTION SITE REACTION [None]
  - INJECTION SITE STINGING [None]
  - OSTEOPOROSIS [None]
